FAERS Safety Report 8791407 (Version 1)
Quarter: 2012Q4

REPORT INFORMATION
  Report Type: Spontaneous
  Country: US (occurrence: None)
  Receive Date: 20120914
  Receipt Date: 20120914
  Transmission Date: 20130627
  Serious: Yes (Death)
  Sender: FDA-Public Use
  Company Number: None

PATIENT
  Age: 85 Year
  Sex: Female
  Weight: 58.5 kg

DRUGS (2)
  1. ENOXAPARIN [Suspect]
     Indication: DRUG THERAPY
     Route: 058
     Dates: start: 20120906, end: 20120907
  2. WARFARIN [Suspect]
     Route: 048
     Dates: start: 20120906, end: 20120907

REACTIONS (5)
  - Fall [None]
  - Facial bones fracture [None]
  - Subarachnoid haemorrhage [None]
  - Intraventricular haemorrhage [None]
  - Cerebrovascular accident [None]
